FAERS Safety Report 18623522 (Version 1)
Quarter: 2020Q4

REPORT INFORMATION
  Report Type: Spontaneous
  Country: CO (occurrence: CO)
  Receive Date: 20201216
  Receipt Date: 20201216
  Transmission Date: 20210114
  Serious: Yes (Other)
  Sender: FDA-Public Use
  Company Number: CO-PFIZER INC-2020136997

PATIENT
  Age: 56 Year
  Sex: Female

DRUGS (1)
  1. REAMPLA [Suspect]
     Active Substance: PALBOCICLIB
     Indication: BREAST CANCER METASTATIC
     Dosage: 100 MG, UNK
     Route: 048
     Dates: start: 201812

REACTIONS (7)
  - Neoplasm progression [Unknown]
  - Peripheral venous disease [Unknown]
  - Hepatitis [Unknown]
  - Decreased appetite [Unknown]
  - Transcription medication error [Unknown]
  - Helicobacter test positive [Unknown]
  - Nausea [Unknown]

NARRATIVE: CASE EVENT DATE: 20200204
